FAERS Safety Report 23569334 (Version 8)
Quarter: 2024Q2

REPORT INFORMATION
  Report Type: Spontaneous
  Country: US (occurrence: US)
  Receive Date: 20240227
  Receipt Date: 20240523
  Transmission Date: 20240716
  Serious: Yes (Hospitalization, Other)
  Sender: FDA-Public Use
  Company Number: US-BRISTOL-MYERS SQUIBB COMPANY-2024-028629

PATIENT
  Age: 68 Year
  Sex: Female

DRUGS (4)
  1. LENALIDOMIDE [Suspect]
     Active Substance: LENALIDOMIDE
     Indication: Plasma cell myeloma
     Dosage: TAKE 1 CAPSULE BY MOUTH EVERY MORNING FOR 14 DAYS, THEN STOP FOR 7 DAYS. TAKE WHOLE WITH WATER DO NO
     Route: 048
     Dates: start: 20240219
  2. LENALIDOMIDE [Suspect]
     Active Substance: LENALIDOMIDE
     Dosage: TAKE 1 CAPSULE BY MOUTH EVERY MORNING FOR 14 DAYS, THEN STOP FOR 7 DAYS. TAKE WHOLE WITH WATER DO NO
     Route: 048
     Dates: start: 20240226
  3. LENALIDOMIDE [Suspect]
     Active Substance: LENALIDOMIDE
     Dosage: TAKE 1 WHOLE CAPSULE BY MOUTH DAILY WITH WATER FOR 14 DAYS THEN STOP FOR 7 DAYS. DO NOT BREAK, CHEW
     Route: 048
  4. LENALIDOMIDE [Suspect]
     Active Substance: LENALIDOMIDE
     Dosage: TAKE 1 CAPSULE WHOLE BY MOUTH WITH WATER EVERY DAY FOR 14 DAYS THEN STOP FOR 7 DAYS. DO NOT BREAK, C
     Route: 048

REACTIONS (18)
  - Vomiting [Not Recovered/Not Resolved]
  - Malaise [Unknown]
  - Pain [Recovering/Resolving]
  - Off label use [Unknown]
  - Muscle spasms [Unknown]
  - Nausea [Unknown]
  - Decreased appetite [Recovered/Resolved]
  - Constipation [Unknown]
  - Somnolence [Unknown]
  - Spinal compression fracture [Unknown]
  - Pruritus [Recovered/Resolved]
  - Back pain [Unknown]
  - Hunger [Unknown]
  - Neutropenia [Recovering/Resolving]
  - Intentional dose omission [Unknown]
  - Dyspnoea [Not Recovered/Not Resolved]
  - Fatigue [Not Recovered/Not Resolved]
  - Asthenia [Not Recovered/Not Resolved]

NARRATIVE: CASE EVENT DATE: 20240221
